FAERS Safety Report 7997393-5 (Version None)
Quarter: 2011Q4

REPORT INFORMATION
  Report Type: 
  Country: None (occurrence: None)
  Receive Date: 20111221
  Receipt Date: 20111219
  Transmission Date: 20120403
  Serious: Yes (Hospitalization, Other)
  Sender: FDA-Public Use
  Company Number: JP-PFIZER INC-2011308024

PATIENT
  Age: 80 Year
  Sex: Female

DRUGS (3)
  1. LOXONIN [Suspect]
     Dosage: 180 MG/DAY
     Route: 048
     Dates: start: 20111212, end: 20111215
  2. VALTREX [Suspect]
     Dosage: 3000 MG/DAY
     Route: 048
     Dates: start: 20111212, end: 20111215
  3. LYRICA [Suspect]
     Dosage: 50 MG/DAY
     Route: 048
     Dates: start: 20111214, end: 20111215

REACTIONS (2)
  - MOVEMENT DISORDER [None]
  - RENAL FAILURE ACUTE [None]
